FAERS Safety Report 7432041-4 (Version None)
Quarter: 2011Q2

REPORT INFORMATION
  Report Type: 
  Country: None (occurrence: None)
  Receive Date: 20110422
  Receipt Date: 20110419
  Transmission Date: 20111010
  Serious: Yes (Hospitalization)
  Sender: FDA-Public Use
  Company Number: US-BRISTOL-MYERS SQUIBB COMPANY-15385818

PATIENT
  Age: 26 Year
  Sex: Female

DRUGS (9)
  1. LORAZEPAM [Concomitant]
     Dosage: 1-2 TABS AT BEDTIME
     Route: 048
  2. ZOFRAN [Concomitant]
     Route: 048
  3. ZOLPIDEM [Concomitant]
     Dosage: CR
  4. GABAPENTIN [Concomitant]
     Route: 048
  5. LOVENOX [Concomitant]
     Dosage: GKM 12JUN10:GKM 12JUN10
     Route: 058
  6. LIDODERM [Concomitant]
     Dosage: GKM 12JUN2010
     Route: 061
  7. IPILIMUMAB [Suspect]
     Indication: MALIGNANT MELANOMA
     Route: 042
     Dates: start: 20100518, end: 20101103
  8. VALACYCLOVIR [Concomitant]
     Route: 048
  9. FENTANYL [Concomitant]
     Dosage: GKM 12JUN2010
     Route: 061

REACTIONS (8)
  - RASH MACULO-PAPULAR [None]
  - OEDEMA PERIPHERAL [None]
  - ERYTHEMA [None]
  - ANAEMIA [None]
  - RASH [None]
  - INFECTION [None]
  - PYREXIA [None]
  - PAIN IN EXTREMITY [None]
